FAERS Safety Report 15491121 (Version 2)
Quarter: 2018Q4

REPORT INFORMATION
  Report Type: Spontaneous
  Country: AU (occurrence: AU)
  Receive Date: 20181012
  Receipt Date: 20181021
  Transmission Date: 20190205
  Serious: Yes (Other)
  Sender: FDA-Public Use
  Company Number: AU-AMGEN-AUSSP2018141651

PATIENT
  Age: 46 Year
  Sex: Male

DRUGS (3)
  1. HUMIRA [Suspect]
     Active Substance: ADALIMUMAB
     Indication: PRODUCT USED FOR UNKNOWN INDICATION
     Dosage: UNK
     Route: 065
     Dates: start: 2008, end: 2009
  2. ENBREL [Suspect]
     Active Substance: ETANERCEPT
     Indication: PSORIATIC ARTHROPATHY
     Dosage: UNK
     Route: 065
     Dates: start: 2003, end: 2008
  3. ENBREL [Suspect]
     Active Substance: ETANERCEPT
     Dosage: UNK
     Route: 065
     Dates: start: 2009

REACTIONS (10)
  - Abdominal infection [Unknown]
  - Abdominal abscess [Unknown]
  - Drug ineffective [Unknown]
  - Thrombocytopenia [Unknown]
  - Gastric infection [Unknown]
  - Appendicitis perforated [Unknown]
  - Arthritis [Unknown]
  - Abscess intestinal [Unknown]
  - Otitis externa [Unknown]
  - Infection [Unknown]

NARRATIVE: CASE EVENT DATE: 2007
